FAERS Safety Report 4584106-2 (Version None)
Quarter: 2005Q1

REPORT INFORMATION
  Report Type: 
  Country: None (occurrence: None)
  Receive Date: 20050211
  Receipt Date: 20020501
  Transmission Date: 20050727
  Serious: Yes (Death)
  Sender: FDA-Public Use
  Company Number: 3631

PATIENT
  Sex: Male

DRUGS (10)
  1. ATRACURIUM [Suspect]
     Indication: INTUBATION
     Dosage: 500 MCG/KG ONCE, IV
     Route: 042
     Dates: start: 20000222, end: 20000222
  2. DIAMORPHINE [Concomitant]
  3. MENADIONE [Concomitant]
  4. FRUSEMIDE [Concomitant]
  5. INDOMETHACIN [Concomitant]
  6. BENZYLPENICILLIN [Concomitant]
  7. ENTAMICIN [Concomitant]
  8. ADRENALINE [Concomitant]
  9. PLASMA PROETEIN SOLUTION [Concomitant]
  10. FLUCLOXACILLIN [Concomitant]

REACTIONS (6)
  - BRADYCARDIA NEONATAL [None]
  - CARDIO-RESPIRATORY ARREST NEONATAL [None]
  - DRUG TOXICITY [None]
  - INTUBATION COMPLICATION [None]
  - OXYGEN SATURATION DECREASED [None]
  - THERAPY NON-RESPONDER [None]
